FAERS Safety Report 4545819-1 (Version None)
Quarter: 2005Q1

REPORT INFORMATION
  Report Type: 
  Country: None (occurrence: None)
  Receive Date: 20050106
  Receipt Date: 20030724
  Transmission Date: 20050727
  Serious: Yes (Hospitalization)
  Sender: FDA-Public Use
  Company Number: AT-NOVOPROD-230775

PATIENT
  Age: 1 Day
  Sex: Female
  Weight: 3 kg

DRUGS (4)
  1. NOVORAPID PENFILL 3.0 ML [Suspect]
     Indication: DIABETES MELLITUS
     Dosage: 15 IU, QD
     Route: 015
     Dates: start: 20030108
  2. ELEVIT PRONATAL [Concomitant]
     Dosage: 1 MG, QD
     Dates: start: 20021218
  3. FERRETAB [Concomitant]
     Dosage: EVERY OTHER DAY
     Dates: start: 20030519
  4. INSULATARD PENFILL [Concomitant]
     Dosage: 12 IU, QD
     Route: 015
     Dates: start: 20030108

REACTIONS (5)
  - CAESAREAN SECTION [None]
  - DRUG EXPOSURE DURING PREGNANCY [None]
  - HYPOGLYCAEMIA NEONATAL [None]
  - IMMATURE RESPIRATORY SYSTEM [None]
  - PREMATURE BABY [None]
